FAERS Safety Report 12216959 (Version 35)
Quarter: 2020Q1

REPORT INFORMATION
  Report Type: Report from Study
  Country: CA (occurrence: CA)
  Receive Date: 20160329
  Receipt Date: 20200211
  Transmission Date: 20200409
  Serious: Yes (Other)
  Sender: FDA-Public Use
  Company Number: PHHY2015CA057753

PATIENT
  Age: 75 Year
  Sex: Female
  Weight: 54.42 kg

DRUGS (7)
  1. CLARITHROMYCIN. [Suspect]
     Active Substance: CLARITHROMYCIN
     Indication: PRODUCT USED FOR UNKNOWN INDICATION
     Route: 065
  2. DETROL LA [Concomitant]
     Active Substance: TOLTERODINE TARTRATE
     Indication: PRODUCT USED FOR UNKNOWN INDICATION
     Dosage: 4 MG, QD IN AM (24 HRS CAP)
     Route: 048
  3. SODIUM CHLORIDE. [Concomitant]
     Active Substance: SODIUM CHLORIDE
     Indication: PRODUCT USED FOR UNKNOWN INDICATION
     Dosage: 1000 MG, QD
     Route: 048
  4. INFLUENZA VACCINE [Concomitant]
     Active Substance: INFLUENZA VIRUS VACCINE
     Indication: PRODUCT USED FOR UNKNOWN INDICATION
     Dosage: UNK
     Route: 065
     Dates: start: 20181106
  5. AMLODIPINE [Concomitant]
     Active Substance: AMLODIPINE BESYLATE
     Indication: PRODUCT USED FOR UNKNOWN INDICATION
     Dosage: 2.5 MG, QD IN AM
     Route: 048
  6. CELECOXIB. [Concomitant]
     Active Substance: CELECOXIB
     Indication: PRODUCT USED FOR UNKNOWN INDICATION
     Dosage: 100 MG, BID (PRN)
     Route: 048
  7. SANDOSTATIN LAR DEPOT [Suspect]
     Active Substance: OCTREOTIDE ACETATE
     Indication: NEUROENDOCRINE TUMOUR
     Dosage: 30 MG, QMO (ONCE A MONTH) (EVERY 4 WEEKS)
     Route: 030
     Dates: start: 20141112

REACTIONS (33)
  - Blood pressure systolic increased [Unknown]
  - Pain in jaw [Unknown]
  - Back pain [Unknown]
  - Infrequent bowel movements [Unknown]
  - Vomiting [Unknown]
  - Heart rate increased [Unknown]
  - Fatigue [Unknown]
  - Nasopharyngitis [Unknown]
  - Blood glucose fluctuation [Unknown]
  - Hypoglycaemia [Recovering/Resolving]
  - Cataract [Not Recovered/Not Resolved]
  - Chest injury [Unknown]
  - Blood pressure increased [Unknown]
  - Rhinorrhoea [Recovering/Resolving]
  - Needle issue [Unknown]
  - Hyperhidrosis [Unknown]
  - Weight decreased [Unknown]
  - Dizziness [Unknown]
  - Fall [Unknown]
  - Contusion [Unknown]
  - Decreased appetite [Unknown]
  - Skin laceration [Unknown]
  - Abdominal distension [Unknown]
  - Headache [Unknown]
  - Balance disorder [Unknown]
  - Cough [Recovering/Resolving]
  - Asthenia [Unknown]
  - Diarrhoea [Unknown]
  - Nausea [Unknown]
  - Muscular weakness [Unknown]
  - Anxiety [Unknown]
  - Tremor [Unknown]
  - Chest pain [Unknown]

NARRATIVE: CASE EVENT DATE: 201509
